FAERS Safety Report 8221777-3 (Version None)
Quarter: 2012Q1

REPORT INFORMATION
  Report Type: 
  Country: None (occurrence: None)
  Receive Date: 20120320
  Receipt Date: 20120320
  Transmission Date: 20120608
  Serious: Yes (Other)
  Sender: FDA-Public Use
  Company Number: None

PATIENT
  Age: 56 Year
  Sex: Female
  Weight: 68.038 kg

DRUGS (1)
  1. CLONIDINE [Suspect]
     Indication: SALIVARY HYPERSECRETION
     Route: 062
     Dates: start: 20110707, end: 20120315

REACTIONS (1)
  - APPLICATION SITE DISCOLOURATION [None]
